FAERS Safety Report 8067548-2 (Version None)
Quarter: 2012Q1

REPORT INFORMATION
  Report Type: 
  Country: None (occurrence: None)
  Receive Date: 20120124
  Receipt Date: 20120117
  Transmission Date: 20120608
  Serious: Yes (Death, Other)
  Sender: FDA-Public Use
  Company Number: JP-GENZYME-CERZ-1002339

PATIENT
  Sex: Male

DRUGS (1)
  1. CEREZYME [Suspect]
     Indication: GAUCHER'S DISEASE
     Dosage: 1200 U, UNK
     Route: 042
     Dates: start: 20070812

REACTIONS (3)
  - PYREXIA [None]
  - DISEASE PROGRESSION [None]
  - CARDIO-RESPIRATORY ARREST [None]
